FAERS Safety Report 18713182 (Version 3)
Quarter: 2021Q3

REPORT INFORMATION
  Report Type: Spontaneous
  Country: US (occurrence: US)
  Receive Date: 20210107
  Receipt Date: 20210720
  Transmission Date: 20211014
  Serious: No
  Sender: FDA-Public Use
  Company Number: US-PFIZER INC-2017192193

PATIENT
  Age: 73 Year
  Sex: Female

DRUGS (9)
  1. DOXYCYCLINE HYCLATE. [Concomitant]
     Active Substance: DOXYCYCLINE HYCLATE
     Dosage: 100 MG, 2X/DAY
     Route: 048
  2. TIZANIDINE. [Concomitant]
     Active Substance: TIZANIDINE
     Dosage: 4 MG, 3X/DAY
     Route: 048
  3. LYRICA [Suspect]
     Active Substance: PREGABALIN
     Dosage: 250 MG, THRICE DAY (LYRICA 200 MG CAP 1 PO TID  AND LYRICA 50 MG CAP 1 PO TID (THRICE A DAY)
     Route: 048
  4. FENOFIBRATE. [Concomitant]
     Active Substance: FENOFIBRATE
     Dosage: 54 MG, DAILY
     Route: 048
  5. LYRICA [Suspect]
     Active Substance: PREGABALIN
     Indication: NEUROPATHY PERIPHERAL
     Dosage: 200 MG, THRICE DAY
     Route: 048
  6. OXYCODONE [Concomitant]
     Active Substance: OXYCODONE
     Dosage: 10 MG, AS NEEDED [EVERY 6?8 HOURS PRN (AS NEEDED)]
  7. PROLOPRIM [Concomitant]
     Active Substance: TRIMETHOPRIM
     Dosage: 100 MG, 2X/DAY (Q (EVERY)12HR)
     Route: 048
  8. LYRICA [Suspect]
     Active Substance: PREGABALIN
     Dosage: 150 MG, THRICE DAY
     Route: 048
  9. OXYCODONE [Concomitant]
     Active Substance: OXYCODONE
     Dosage: 10 MG, 4X/DAY [Q (EVERY) 6HR ]
     Route: 048

REACTIONS (4)
  - COVID-19 [Unknown]
  - Prescribed overdose [Unknown]
  - Drug ineffective [Unknown]
  - Nervousness [Unknown]
